FAERS Safety Report 5595838-1 (Version None)
Quarter: 2008Q1

REPORT INFORMATION
  Report Type: 
  Country: None (occurrence: None)
  Receive Date: 20080118
  Receipt Date: 20080103
  Transmission Date: 20080703
  Serious: Yes (Hospitalization)
  Sender: FDA-Public Use
  Company Number: US-ELI_LILLY_AND_COMPANY-US200801001830

PATIENT
  Sex: Male
  Weight: 35.374 kg

DRUGS (5)
  1. GEMCITABINE HCL [Suspect]
     Indication: PANCREATIC CARCINOMA
     Dosage: 1000 MG/M2, OTHER
     Route: 042
     Dates: start: 20071128
  2. CETUXIMAB [Suspect]
     Indication: PANCREATIC CARCINOMA
     Dosage: 400 MG/M2, WEEKLY (1/W)
     Route: 042
     Dates: start: 20071128
  3. OXALIPLATIN [Suspect]
     Indication: PANCREATIC CARCINOMA
     Dosage: 100 MG/M2, OTHER
     Route: 042
     Dates: start: 20071128
  4. ALLOPURINOL [Concomitant]
     Indication: GOUT
     Dates: start: 20070601
  5. INDOCIN [Concomitant]
     Indication: GOUT
     Dosage: 50 MG, 2/D
     Route: 048
     Dates: start: 20071206

REACTIONS (4)
  - DEHYDRATION [None]
  - LEUKOCYTOCLASTIC VASCULITIS [None]
  - PETECHIAE [None]
  - PURPURA [None]
